FAERS Safety Report 4836516-3 (Version None)
Quarter: 2005Q4

REPORT INFORMATION
  Report Type: 
  Country: None (occurrence: None)
  Receive Date: 20051123
  Receipt Date: 20051115
  Transmission Date: 20060501
  Serious: Yes (Other)
  Sender: FDA-Public Use
  Company Number: JP-JPN-A20052751

PATIENT
  Age: 34 Year
  Sex: Male

DRUGS (4)
  1. PAXIL [Suspect]
     Route: 048
  2. SULPIRIDE [Suspect]
     Route: 065
  3. CARBAMAZEPINE [Suspect]
     Route: 065
  4. ETIZOLAM [Concomitant]
     Route: 065

REACTIONS (1)
  - ATRIOVENTRICULAR BLOCK FIRST DEGREE [None]
